FAERS Safety Report 4953788-5 (Version None)
Quarter: 2006Q1

REPORT INFORMATION
  Report Type: 
  Country: None (occurrence: None)
  Receive Date: 20060321
  Receipt Date: 20060309
  Transmission Date: 20060701
  Serious: Yes (Hospitalization)
  Sender: FDA-Public Use
  Company Number: S06-USA-01066-02

PATIENT
  Sex: Female

DRUGS (2)
  1. CELEXA [Suspect]
     Dosage: 20 MG QD TRANSPLACENTAL
     Route: 064
     Dates: end: 20050929
  2. CELEXA [Suspect]
     Dosage: 20 MG QD BF
     Dates: start: 20050929

REACTIONS (13)
  - APGAR SCORE LOW [None]
  - C-REACTIVE PROTEIN INCREASED [None]
  - COOMBS TEST POSITIVE [None]
  - CRYING [None]
  - DRUG EXPOSURE DURING PREGNANCY [None]
  - HAEMATOCRIT DECREASED [None]
  - HYPOTONIA NEONATAL [None]
  - JAUNDICE NEONATAL [None]
  - MATERNAL CONDITION AFFECTING FOETUS [None]
  - NEONATAL ASPIRATION [None]
  - NEONATAL PNEUMONIA [None]
  - NEONATAL TACHYPNOEA [None]
  - POOR PERIPHERAL CIRCULATION [None]
